FAERS Safety Report 16610666 (Version 4)
Quarter: 2019Q3

REPORT INFORMATION
  Report Type: Spontaneous
  Country: US (occurrence: US)
  Receive Date: 20190722
  Receipt Date: 20190927
  Transmission Date: 20191004
  Serious: Yes (Hospitalization, Other)
  Sender: FDA-Public Use
  Company Number: US-VERTEX PHARMACEUTICALS-2019-006640

PATIENT
  Age: 19 Year
  Sex: Female
  Weight: 66 kg

DRUGS (42)
  1. PULMOZYME [Concomitant]
     Active Substance: DORNASE ALFA
     Dosage: UNK
  2. PULMOZYME [Concomitant]
     Active Substance: DORNASE ALFA
     Dosage: (2.5 MG/2.5 ML ) 2.5 MILLILITER, BID
  3. MAGNESIUM [Concomitant]
     Active Substance: MAGNESIUM
     Dosage: 200 MILLIGRAM, BID
     Route: 048
  4. TYLENOL [Concomitant]
     Active Substance: ACETAMINOPHEN
     Dosage: 2 DOSAGE FORM, QID
     Route: 048
  5. APIXABAN [Concomitant]
     Active Substance: APIXABAN
     Dosage: 1 DOSAGE FORM, BID
     Route: 048
  6. CHROMIUM PICOLINATE [Concomitant]
     Active Substance: CHROMIUM PICOLINATE
     Dosage: 1 DOSAGE FORM, QD
     Route: 048
  7. ZOFRAN [Concomitant]
     Active Substance: ONDANSETRON HYDROCHLORIDE
     Dosage: 1 DOSAGE FORM, EVERY 8 HOUR * 30 DAYS
     Route: 048
  8. ZOLOFT [Concomitant]
     Active Substance: SERTRALINE HYDROCHLORIDE
     Dosage: 100 MILLIGRAM, 1 DOSAGE FORM, QD
     Route: 048
     Dates: end: 20190821
  9. LEVOTHYROXINE. [Concomitant]
     Active Substance: LEVOTHYROXINE
     Dosage: 1 DOSAGE FORM, QD * 90 DAYS
     Route: 048
  10. METOCLOPRAMIDE. [Concomitant]
     Active Substance: METOCLOPRAMIDE
     Dosage: 1 DOSAGE FORM, QID
     Route: 048
  11. SYMDEKO [Suspect]
     Active Substance: IVACAFTOR\TEZACAFTOR
     Indication: CYSTIC FIBROSIS
     Dosage: 1 DOSAGE FORM, BID
     Route: 048
     Dates: start: 201804
  12. SYNTHROID [Concomitant]
     Active Substance: LEVOTHYROXINE SODIUM
     Dosage: UNK
  13. BENADRYL [Concomitant]
     Active Substance: DIPHENHYDRAMINE HYDROCHLORIDE
     Dosage: 1-2 DOSAGE FORM, QD
     Route: 048
  14. CREON [Concomitant]
     Active Substance: PANCRELIPASE AMYLASE\PANCRELIPASE LIPASE\PANCRELIPASE PROTEASE
     Dosage: 24,000 UNITS, 6 CAPSULES WITH MEALS AND 3-4 CAPULES,TID WITH SNACKS
     Route: 048
  15. FISH OIL [Concomitant]
     Active Substance: FISH OIL
     Dosage: 1 DOSAGE FORM, QD
     Route: 048
  16. LEVALBUTEROL [LEVOSALBUTAMOL] [Concomitant]
     Active Substance: LEVALBUTEROL
     Dosage: (0.63 MG/3 ML) 3 ML INHALED EVERY 4 HOURS, PRN
  17. MONTELUKAST [Concomitant]
     Active Substance: MONTELUKAST SODIUM
     Dosage: 1 DOSAGE FORM, QD * 30 DAYS
     Route: 048
  18. SALINE [SODIUM CHLORIDE] [Concomitant]
     Active Substance: SODIUM CHLORIDE
     Dosage: NASAL SPRAY, BID
  19. CIPRO [Concomitant]
     Active Substance: CIPROFLOXACIN HYDROCHLORIDE
     Dosage: UNK
  20. OLANZAPINE. [Concomitant]
     Active Substance: OLANZAPINE
     Dosage: 1 DOSAGE FORM, QD
     Route: 048
  21. PROTANDIM [Concomitant]
     Active Substance: DIETARY SUPPLEMENT
     Dosage: 1 DOSAGE FORM, QD * 30 DAYS
  22. ZOLOFT [Concomitant]
     Active Substance: SERTRALINE HYDROCHLORIDE
     Dosage: 50 MILLIGRAM, 1 DOSAGE FORM, QD
     Route: 048
     Dates: end: 20190821
  23. LEVALBUTEROL [LEVOSALBUTAMOL] [Concomitant]
     Active Substance: LEVALBUTEROL
     Dosage: (1.25 MG/3 ML) 3 ML INHALED EVERY 4 HOURS
  24. LEVALBUTEROL [LEVOSALBUTAMOL] [Concomitant]
     Active Substance: LEVALBUTEROL
     Dosage: 1-2 TIMES A DAY
  25. AFRIN [OXYMETAZOLINE] [Concomitant]
     Dosage: 2 SPRAYS, BID
     Route: 045
  26. TOPIRAMATE. [Concomitant]
     Active Substance: TOPIRAMATE
     Dosage: 1 DOSAGE FORM, QD
  27. SYMDEKO [Suspect]
     Active Substance: IVACAFTOR\TEZACAFTOR
     Dosage: 1 MONTH
     Route: 048
  28. SYMDEKO [Suspect]
     Active Substance: IVACAFTOR\TEZACAFTOR
     Dosage: 1 DOSAGE FORM, BID
     Route: 048
  29. DYMISTA [Concomitant]
     Active Substance: AZELASTINE HYDROCHLORIDE\FLUTICASONE PROPIONATE
     Dosage: 137MCG-50 MCG, 1 SPRAY, QD
     Route: 045
  30. OMEPRAZOLE. [Concomitant]
     Active Substance: OMEPRAZOLE
     Dosage: 1 DOSAGE FORM, QD
     Route: 048
  31. PREDNISONE. [Concomitant]
     Active Substance: PREDNISONE
     Dosage: 2 DOSAGE FORM, QD * 5 DAYS
     Route: 048
  32. ALLEGRA [Concomitant]
     Active Substance: FEXOFENADINE HYDROCHLORIDE
     Dosage: 1 DOSAGE FORM, QD
     Route: 048
  33. DULERA [Concomitant]
     Active Substance: FORMOTEROL FUMARATE DIHYDRATE\MOMETASONE FUROATE
     Dosage: 200MCG-5MCG, 2 PUFFS INHALED, BID
  34. CAYSTON [Concomitant]
     Active Substance: AZTREONAM
     Dosage: UNK
  35. CAYSTON [Concomitant]
     Active Substance: AZTREONAM
     Dosage: 75 MILLIGRAM, TID * 28 DAYS EVERY ONE MONTH
  36. CALCIUM [Concomitant]
     Active Substance: CALCIUM
     Dosage: 1 DOSAGE FORM (CHEWABLE), QD
     Route: 048
  37. MIRALAX [Concomitant]
     Active Substance: POLYETHYLENE GLYCOL 3350
     Dosage: 17 GRAM, QD
     Route: 048
  38. SUMATRIPTAN. [Concomitant]
     Active Substance: SUMATRIPTAN
     Dosage: 1 DOSAGE FORM ORALLY AS NEEDED
     Route: 048
  39. AZITHROMYCIN [AZITHROMYCIN DIHYDRATE] [Concomitant]
     Dosage: 1 DOSAGE FORM (M-W-F * 30 DAYS)
     Route: 048
  40. NAPROXEN SODIUM. [Concomitant]
     Active Substance: NAPROXEN SODIUM
     Dosage: 2 DOSAGE FORM, EVERY 8 HOURS
     Route: 048
  41. ALBUTEROL [SALBUTAMOL] [Concomitant]
     Active Substance: ALBUTEROL
  42. SODIUM CHLORIDE. [Concomitant]
     Active Substance: SODIUM CHLORIDE
     Dosage: 4 MILLILITER BY NEBULIZER, BID

REACTIONS (6)
  - Fatigue [Unknown]
  - Somnolence [Unknown]
  - Deep vein thrombosis [Not Recovered/Not Resolved]
  - Headache [Unknown]
  - Bronchopulmonary aspergillosis allergic [Recovered/Resolved]
  - Infective pulmonary exacerbation of cystic fibrosis [Recovered/Resolved]

NARRATIVE: CASE EVENT DATE: 201907
